FAERS Safety Report 9734744 (Version 3)
Quarter: 2014Q1

REPORT INFORMATION
  Report Type: Spontaneous
  Country: BE (occurrence: BE)
  Receive Date: 20131206
  Receipt Date: 20140109
  Transmission Date: 20141002
  Serious: Yes (Disabling)
  Sender: FDA-Public Use
  Company Number: BE-JNJFOC-20131201478

PATIENT
  Age: 64 Year
  Sex: Female
  Weight: 72 kg

DRUGS (8)
  1. XARELTO [Suspect]
     Indication: CEREBROVASCULAR ACCIDENT PROPHYLAXIS
     Route: 048
     Dates: start: 20130911
  2. XARELTO [Suspect]
     Indication: ATRIAL FIBRILLATION
     Route: 048
     Dates: start: 20130911
  3. APOCARD [Concomitant]
     Indication: ATRIAL FIBRILLATION
     Route: 048
  4. TOTALIP [Concomitant]
     Indication: BLOOD CHOLESTEROL ABNORMAL
     Route: 048
  5. SYMBICORT [Concomitant]
     Indication: ASTHMA
     Route: 065
  6. L-THYROXINE [Concomitant]
     Indication: THYROID DISORDER
     Route: 048
  7. LORAZEPAM [Concomitant]
     Indication: SLEEP DISORDER
     Route: 048
  8. ATACAND [Concomitant]
     Indication: HYPERTENSION
     Route: 065

REACTIONS (1)
  - Retinal detachment [Recovered/Resolved with Sequelae]
